FAERS Safety Report 17466763 (Version 1)
Quarter: 2020Q1

REPORT INFORMATION
  Report Type: Report from Study
  Country: FR (occurrence: FR)
  Receive Date: 20200227
  Receipt Date: 20200227
  Transmission Date: 20200409
  Serious: Yes (Death, Other)
  Sender: FDA-Public Use
  Company Number: FR-VIIV HEALTHCARE LIMITED-B0652863A

PATIENT
  Age: 0 Day
  Sex: Female

DRUGS (4)
  1. NORVIR [Suspect]
     Active Substance: RITONAVIR
     Indication: MATERNAL EXPOSURE TIMING UNSPECIFIED
     Dosage: 200 MG, QD
     Route: 064
     Dates: start: 20090623, end: 20091220
  2. LAMIVUDINE AND ZIDOVUDINE [Suspect]
     Active Substance: LAMIVUDINE\ZIDOVUDINE
     Indication: HIV INFECTION
     Dosage: 2 DF (TABLET)
     Route: 064
     Dates: start: 20090623
  3. INVIRASE [Suspect]
     Active Substance: SAQUINAVIR MESYLATE
     Indication: MATERNAL EXPOSURE TIMING UNSPECIFIED
     Dosage: 2000 MG, QD
     Route: 064
     Dates: start: 20090623, end: 20091220
  4. ZIDOVUDINE. [Suspect]
     Active Substance: ZIDOVUDINE
     Indication: HIV INFECTION
     Dosage: UNK (1 MG/KG/HR)
     Route: 064
     Dates: start: 20091220, end: 20091220

REACTIONS (6)
  - Mitochondrial cytopathy [Fatal]
  - Hepatocellular injury [Fatal]
  - Hyperlactacidaemia [Fatal]
  - Ammonia increased [Fatal]
  - Multiple organ dysfunction syndrome [Fatal]
  - Foetal exposure during pregnancy [Unknown]

NARRATIVE: CASE EVENT DATE: 20091220
